FAERS Safety Report 8058787-5 (Version None)
Quarter: 2012Q1

REPORT INFORMATION
  Report Type: 
  Country: None (occurrence: None)
  Receive Date: 20120119
  Receipt Date: 20120119
  Transmission Date: 20120608
  Serious: Yes (Hospitalization)
  Sender: FDA-Public Use
  Company Number: None

PATIENT
  Age: 58 Year
  Sex: Male
  Weight: 105.5 kg

DRUGS (8)
  1. METFORMIN [Concomitant]
  2. TOPROL-XL [Concomitant]
  3. TIKOSYN [Concomitant]
  4. MAG OX [Concomitant]
  5. COUMADIN [Suspect]
     Indication: ATRIAL FIBRILLATION
     Dosage: 10 MG DAILY PO CHRONIC
     Route: 048
  6. ENALAPRIL MALEATE [Concomitant]
  7. ZOCOR [Concomitant]
  8. LASIX [Concomitant]

REACTIONS (4)
  - PERICARDIAL EFFUSION [None]
  - DEEP VEIN THROMBOSIS [None]
  - ANTICOAGULATION DRUG LEVEL ABOVE THERAPEUTIC [None]
  - INTERNATIONAL NORMALISED RATIO INCREASED [None]
